FAERS Safety Report 12659157 (Version 5)
Quarter: 2017Q1

REPORT INFORMATION
  Report Type: Spontaneous
  Country: DE (occurrence: DE)
  Receive Date: 20160817
  Receipt Date: 20170202
  Transmission Date: 20170428
  Serious: Yes (Hospitalization, Disabling, Other)
  Sender: FDA-Public Use
  Company Number: DE-PFIZER INC-2016273627

PATIENT
  Age: 84 Year
  Sex: Male
  Weight: 70 kg

DRUGS (15)
  1. VFEND [Interacting]
     Active Substance: VORICONAZOLE
     Dosage: 280 MG, 2X/DAY
     Route: 042
     Dates: start: 20150517, end: 20150520
  2. VFEND [Interacting]
     Active Substance: VORICONAZOLE
     Dosage: 420 MG, 2X/DAY
     Route: 042
     Dates: start: 20150622, end: 20150622
  3. VFEND [Interacting]
     Active Substance: VORICONAZOLE
     Indication: EYE INFECTION FUNGAL
     Dosage: 200 MG, 2X6
     Route: 048
     Dates: start: 20160521, end: 20160604
  4. VFEND [Interacting]
     Active Substance: VORICONAZOLE
     Dosage: 280 MG, 2X/DAY
     Route: 042
     Dates: start: 20150623, end: 20150701
  5. VORICONAZOLE. [Suspect]
     Active Substance: VORICONAZOLE
     Indication: EYE INFECTION FUNGAL
     Dosage: UNK
     Dates: start: 201412, end: 201412
  6. AVODART [Concomitant]
     Active Substance: DUTASTERIDE
     Indication: PROSTATIC DISORDER
     Dosage: UNK, 2X/DAY
  7. EFEROX [Concomitant]
     Active Substance: LEVOTHYROXINE SODIUM
     Indication: HYPOTHYROIDISM
     Dosage: 75 MG, DAILY
     Route: 048
     Dates: start: 20160512
  8. PREDNISOLONE. [Concomitant]
     Active Substance: PREDNISOLONE
     Dosage: 2.5 MG, DAILY
     Route: 048
     Dates: start: 20160515, end: 20160516
  9. INFLANEFRAN [Concomitant]
     Indication: CANDIDA INFECTION
     Dosage: UNK
  10. TOVIAZ [Concomitant]
     Active Substance: FESOTERODINE FUMARATE
     Indication: HYPERTONIC BLADDER
     Dosage: 4 MG, DAILY
     Route: 048
     Dates: start: 20160512
  11. MAGALDRATE [Concomitant]
     Active Substance: MAGALDRATE
     Dosage: 1600 MG/10 ML, DAILY
     Route: 048
     Dates: start: 20160512
  12. FESOTERODINE [Interacting]
     Active Substance: FESOTERODINE
     Indication: SCLERITIS
     Dosage: UNK
     Dates: start: 201412, end: 201412
  13. PREDNISOLONE. [Concomitant]
     Active Substance: PREDNISOLONE
     Indication: UVEITIS
     Dosage: 10 MG, DAILY
     Route: 048
     Dates: start: 20160512, end: 20160514
  14. VFEND [Interacting]
     Active Substance: VORICONAZOLE
     Indication: EYE INFECTION FUNGAL
     Dosage: 420 MG, 2X/DAY
     Route: 042
     Dates: start: 20150516, end: 20150516
  15. TOVIAZ [Concomitant]
     Active Substance: FESOTERODINE FUMARATE
     Indication: INCONTINENCE

REACTIONS (10)
  - Disease recurrence [Recovered/Resolved]
  - Hallucination, visual [Recovered/Resolved]
  - Hallucination [Recovered/Resolved]
  - Visual acuity reduced [Recovered/Resolved]
  - Drug interaction [Recovered/Resolved]
  - Petechiae [Unknown]
  - Disorientation [Not Recovered/Not Resolved]
  - Confusional state [Unknown]
  - Eye infection fungal [Recovered/Resolved]
  - Product use issue [Unknown]

NARRATIVE: CASE EVENT DATE: 201412
